FAERS Safety Report 19064403 (Version 1)
Quarter: 2021Q1

REPORT INFORMATION
  Report Type: Report from Study
  Country: SG (occurrence: SG)
  Receive Date: 20210326
  Receipt Date: 20210326
  Transmission Date: 20210420
  Serious: Yes (Death, Hospitalization)
  Sender: FDA-Public Use
  Company Number: NVSC2021SG070316

PATIENT
  Age: 80 Year
  Sex: Male

DRUGS (1)
  1. REVOLADE [Suspect]
     Active Substance: ELTROMBOPAG OLAMINE
     Indication: IMMUNE THROMBOCYTOPENIA
     Dosage: STARTED IN EARLY MARCH FOR 2 WEEKS
     Route: 048

REACTIONS (2)
  - Haemorrhage [Fatal]
  - Drug ineffective [Unknown]

NARRATIVE: CASE EVENT DATE: 202103
